FAERS Safety Report 15606030 (Version 1)
Quarter: 2018Q4

REPORT INFORMATION
  Report Type: Spontaneous
  Country: US (occurrence: US)
  Receive Date: 20181112
  Receipt Date: 20181112
  Transmission Date: 20190205
  Serious: Yes (Other)
  Sender: FDA-Public Use
  Company Number: US-LEXICON PHARMACEUTICALS, INC-18-1606-01407

PATIENT
  Sex: Male

DRUGS (3)
  1. TELOTRISTAT ETHYL [Suspect]
     Active Substance: TELOTRISTAT ETHYL
     Indication: CARCINOID TUMOUR OF THE SMALL BOWEL
  2. TELOTRISTAT ETHYL [Suspect]
     Active Substance: TELOTRISTAT ETHYL
     Indication: CARCINOID TUMOUR
     Route: 048
     Dates: start: 20180814
  3. AFINITOR [Concomitant]
     Active Substance: EVEROLIMUS
     Route: 048
     Dates: end: 2018

REACTIONS (5)
  - Hypersensitivity [Unknown]
  - Stomatitis [Unknown]
  - Abdominal pain [Unknown]
  - Flushing [Unknown]
  - Lip swelling [Unknown]

NARRATIVE: CASE EVENT DATE: 2018
